FAERS Safety Report 7093079-2 (Version None)
Quarter: 2010Q4

REPORT INFORMATION
  Report Type: 
  Country: None (occurrence: None)
  Receive Date: 20101110
  Receipt Date: 20101104
  Transmission Date: 20110411
  Serious: Yes (Other)
  Sender: FDA-Public Use
  Company Number: PHFR2010IE02272

PATIENT

DRUGS (7)
  1. CLOZARIL [Suspect]
     Indication: PSYCHOTIC DISORDER
     Dosage: 375 MG DAILY
     Route: 048
     Dates: start: 20090511
  2. OLANZAPINE [Concomitant]
     Dosage: UNK
     Route: 048
  3. FLURAZEPAM [Concomitant]
     Dosage: UNK
     Route: 048
  4. LITHIUM [Concomitant]
     Dosage: UNK
  5. VENLAFAXINE [Concomitant]
     Dosage: UNK
     Route: 048
  6. ACETYLSALICYLIC ACID [Concomitant]
     Dosage: UNK
     Route: 048
  7. DEPO-PROVERA [Concomitant]
     Dosage: UNK

REACTIONS (3)
  - EOSINOPHIL COUNT INCREASED [None]
  - HIDRADENITIS [None]
  - WHITE BLOOD CELL COUNT INCREASED [None]
